FAERS Safety Report 8230560-4 (Version None)
Quarter: 2012Q1

REPORT INFORMATION
  Report Type: 
  Country: None (occurrence: None)
  Receive Date: 20120323
  Receipt Date: 20120317
  Transmission Date: 20120608
  Serious: Yes (Other)
  Sender: FDA-Public Use
  Company Number: AU-JNJFOC-20120308664

PATIENT
  Sex: Female

DRUGS (10)
  1. DIFORMIN [Concomitant]
     Route: 065
  2. BLOOD PRESSURE MEDICATION NOS [Concomitant]
     Route: 065
  3. STELARA [Suspect]
     Route: 058
     Dates: start: 20110123, end: 20110123
  4. STELARA [Suspect]
     Route: 058
     Dates: start: 20110710, end: 20110710
  5. STELARA [Suspect]
     Route: 058
     Dates: start: 20111225, end: 20111225
  6. STELARA [Suspect]
     Indication: PSORIASIS
     Route: 058
     Dates: start: 20101226, end: 20101226
  7. CELEBREX [Concomitant]
     Route: 065
  8. STELARA [Suspect]
     Route: 058
     Dates: start: 20110417, end: 20110417
  9. STELARA [Suspect]
     Route: 058
     Dates: start: 20111002, end: 20111002
  10. GLYADE [Concomitant]
     Route: 065

REACTIONS (1)
  - STAPHYLOCOCCAL INFECTION [None]
